FAERS Safety Report 7170172-7 (Version None)
Quarter: 2010Q4

REPORT INFORMATION
  Report Type: 
  Country: None (occurrence: None)
  Receive Date: 20101217
  Receipt Date: 20101213
  Transmission Date: 20110411
  Serious: Yes (Other)
  Sender: FDA-Public Use
  Company Number: GB-TEVA-259893ISR

PATIENT
  Age: 46 Year
  Sex: Female
  Weight: 60 kg

DRUGS (1)
  1. TRIMETHOPRIM [Suspect]
     Indication: URINARY TRACT INFECTION
     Dates: start: 20101116, end: 20101119

REACTIONS (5)
  - ABDOMINAL DISTENSION [None]
  - EYE PAIN [None]
  - MUCOUS STOOLS [None]
  - OCULAR HYPERAEMIA [None]
  - OCULAR ICTERUS [None]
